FAERS Safety Report 8795167 (Version 2)
Quarter: 2012Q4

REPORT INFORMATION
  Report Type: 
  Country: US (occurrence: US)
  Receive Date: 20120917
  Receipt Date: 20121026
  Transmission Date: 20130627
  Serious: Yes (Death)
  Sender: FDA-Public Use
  Company Number: US-ROCHE-1128643

PATIENT
  Sex: Female

DRUGS (2)
  1. AVASTIN [Suspect]
     Indication: NEOPLASM MALIGNANT
     Route: 065
     Dates: start: 20110329, end: 20110907
  2. AVASTIN [Suspect]
     Indication: NEUROENDOCRINE CARCINOMA

REACTIONS (1)
  - Neuroendocrine carcinoma [Fatal]
